FAERS Safety Report 4871916-7 (Version None)
Quarter: 2005Q4

REPORT INFORMATION
  Report Type: 
  Country: None (occurrence: None)
  Receive Date: 20051230
  Receipt Date: 20051219
  Transmission Date: 20060501
  Serious: Yes (Life-Threatening, Other)
  Sender: FDA-Public Use
  Company Number: 2005171313

PATIENT
  Age: 55 Year
  Sex: Male

DRUGS (10)
  1. XANAX [Suspect]
     Indication: ANXIETY
     Dosage: ORAL
     Route: 048
     Dates: start: 20051014, end: 20051113
  2. NEURONTIN [Suspect]
     Indication: PAIN
     Dosage: ORAL
     Route: 048
     Dates: start: 20050923, end: 20051113
  3. EFFEXOR [Concomitant]
  4. TOPALGIC (TRAMADOL HYDROCHLORIDE) [Concomitant]
  5. NEXIUM [Concomitant]
  6. HEPARIN [Concomitant]
  7. POSACONAZOLE [Suspect]
     Indication: BRONCHOPULMONARY ASPERGILLOSIS
     Dosage: 800 MG (400 MG 2 IN 1D) ORAL
     Route: 048
     Dates: start: 20051021, end: 20051115
  8. AMITRIPTYLINE HCL [Suspect]
     Indication: PAIN
     Dosage: ORAL
     Route: 048
     Dates: start: 20050923, end: 20051113
  9. CEFTAZIDIME PENTAHYDRATE [Suspect]
     Indication: PYREXIA
     Dosage: INTRAVENOUS
     Route: 042
     Dates: start: 20051025, end: 20051113
  10. LEVOFLOXACIN [Suspect]
     Indication: PYREXIA
     Dosage: ORAL
     Route: 048
     Dates: start: 20051023, end: 20051113

REACTIONS (7)
  - ANXIETY [None]
  - CYTOLYTIC HEPATITIS [None]
  - DEPRESSION [None]
  - HEPATIC FAILURE [None]
  - HEPATOSPLENIC CANDIDIASIS [None]
  - PYREXIA [None]
  - RENAL FAILURE [None]
